FAERS Safety Report 9166609 (Version 1)
Quarter: 2013Q1

REPORT INFORMATION
  Report Type: Spontaneous
  Country: US (occurrence: US)
  Receive Date: 20130315
  Receipt Date: 20130315
  Transmission Date: 20140127
  Serious: No
  Sender: FDA-Public Use
  Company Number: US-ASTRAZENECA-2013SE10287

PATIENT
  Age: 900 Month
  Sex: Female
  Weight: 55.8 kg

DRUGS (12)
  1. SYMBICORT [Suspect]
     Indication: CHRONIC OBSTRUCTIVE PULMONARY DISEASE
     Dosage: 160/44.5 MCG, TWO PUFFS TWO TIMES A DAY
     Route: 055
     Dates: start: 201204
  2. ALBUTEROL (PRO AIR) [Concomitant]
  3. LIPITOR [Concomitant]
  4. BACLOFEN [Concomitant]
  5. CLONIDINE [Concomitant]
  6. DIAZEPAM [Concomitant]
  7. DIGOXIN [Concomitant]
  8. HYDROCODONE [Concomitant]
  9. OMEGA FISH OIL [Concomitant]
  10. LYRICA [Concomitant]
  11. DIOVAN [Concomitant]
  12. AGRANAUT (SP) [Concomitant]

REACTIONS (1)
  - Tooth loss [Not Recovered/Not Resolved]
